FAERS Safety Report 16120840 (Version 1)
Quarter: 2019Q1

REPORT INFORMATION
  Report Type: Spontaneous
  Country: JP (occurrence: JP)
  Receive Date: 20190327
  Receipt Date: 20190327
  Transmission Date: 20190418
  Serious: Yes (Other)
  Sender: FDA-Public Use
  Company Number: JP-ROCHE-2054904

PATIENT
  Age: 7 Decade
  Sex: Female

DRUGS (1)
  1. AVASTIN [Suspect]
     Active Substance: BEVACIZUMAB
     Indication: OVARIAN CANCER
     Dosage: DOSAGE IS UNCERTAIN.
     Route: 041

REACTIONS (20)
  - Epistaxis [Unknown]
  - Palpitations [Unknown]
  - Vascular stenosis [Unknown]
  - Gingival swelling [Unknown]
  - Feeling abnormal [Unknown]
  - Intestinal obstruction [Unknown]
  - Gingival bleeding [Unknown]
  - Hot flush [Unknown]
  - Renal cyst [Unknown]
  - Decreased appetite [Unknown]
  - Hypersomnia [Unknown]
  - Dizziness [Unknown]
  - Protein urine [Unknown]
  - Haemoptysis [Unknown]
  - Erythema [Unknown]
  - Head discomfort [Not Recovered/Not Resolved]
  - Vasospasm [Unknown]
  - Fatigue [Unknown]
  - Vascular fragility [Unknown]
  - Blood pressure systolic increased [Unknown]
